FAERS Safety Report 14888760 (Version 2)
Quarter: 2018Q2

REPORT INFORMATION
  Report Type: Report from Study
  Country: US (occurrence: US)
  Receive Date: 20180513
  Receipt Date: 20180525
  Transmission Date: 20180711
  Serious: No
  Sender: FDA-Public Use
  Company Number: PHEH2018US018063

PATIENT
  Age: 4 Year
  Sex: Male

DRUGS (1)
  1. ILARIS [Suspect]
     Active Substance: CANAKINUMAB
     Indication: JUVENILE IDIOPATHIC ARTHRITIS
     Dosage: 60 MG, EVERY 4 WEEKS
     Route: 058

REACTIONS (2)
  - Psychomotor hyperactivity [Unknown]
  - Anxiety [Unknown]

NARRATIVE: CASE EVENT DATE: 20180504
